FAERS Safety Report 16297096 (Version 1)
Quarter: 2019Q2

REPORT INFORMATION
  Report Type: Spontaneous
  Country: US (occurrence: US)
  Receive Date: 20190509
  Receipt Date: 20190509
  Transmission Date: 20190711
  Serious: Yes (Disabling)
  Sender: FDA-Public Use
  Company Number: None

PATIENT
  Age: 62 Year
  Sex: Female

DRUGS (1)
  1. ENBREL [Suspect]
     Active Substance: ETANERCEPT
     Indication: RHEUMATOID ARTHRITIS
     Dosage: ?          QUANTITY:1 INJECTION(S);OTHER FREQUENCY:ONCE PER WEEK;OTHER ROUTE:SUBCUTANEOUS INJECTION (STOMACH OR THIGH?
     Dates: start: 20190407, end: 20190421

REACTIONS (5)
  - Therapy non-responder [None]
  - Manufacturing issue [None]
  - Product complaint [None]
  - Manufacturing product shipping issue [None]
  - Pain [None]

NARRATIVE: CASE EVENT DATE: 20190407
